FAERS Safety Report 4382889-8 (Version None)
Quarter: 2004Q2

REPORT INFORMATION
  Report Type: 
  Country: None (occurrence: None)
  Receive Date: 20040617
  Receipt Date: 20040610
  Transmission Date: 20050107
  Serious: Yes (Hospitalization)
  Sender: FDA-Public Use
  Company Number: 8192

PATIENT
  Age: 35 Year
  Sex: Male

DRUGS (9)
  1. LEUCOVORIN [Suspect]
     Indication: COLORECTAL CANCER METASTATIC
     Dates: start: 20040212
  2. FLUOROURACIL [Suspect]
     Indication: COLORECTAL CANCER METASTATIC
     Dates: start: 20040212
  3. OXALIPLATIN [Suspect]
     Indication: COLORECTAL CANCER METASTATIC
     Dates: start: 20040212
  4. DOUBLE BLIND STUDY MEDICATION [Suspect]
     Indication: COLORECTAL CANCER METASTATIC
     Dates: start: 20040212, end: 20040422
  5. DECADRON [Concomitant]
  6. MARINOL [Concomitant]
  7. PROCHLORPERAZINE [Concomitant]
  8. IMODIUM [Concomitant]
  9. MORPHINE [Concomitant]

REACTIONS (3)
  - DIZZINESS POSTURAL [None]
  - FEBRILE NEUTROPENIA [None]
  - HICCUPS [None]
